FAERS Safety Report 6146228-4 (Version None)
Quarter: 2009Q2

REPORT INFORMATION
  Report Type: 
  Country: None (occurrence: None)
  Receive Date: 20090407
  Receipt Date: 20090402
  Transmission Date: 20091009
  Serious: Yes (Hospitalization)
  Sender: FDA-Public Use
  Company Number: DE-ABBOTT-09P-062-0566160-00

PATIENT
  Weight: 101 kg

DRUGS (2)
  1. HUMIRA [Suspect]
     Indication: CROHN'S DISEASE
     Route: 058
  2. ENALAPRIL [Concomitant]
     Indication: HYPERTENSION

REACTIONS (1)
  - FEMALE GENITAL TRACT FISTULA [None]
